FAERS Safety Report 8205524-7 (Version None)
Quarter: 2012Q1

REPORT INFORMATION
  Report Type: 
  Country: None (occurrence: None)
  Receive Date: 20120313
  Receipt Date: 20120113
  Transmission Date: 20120608
  Serious: Yes (Other)
  Sender: FDA-Public Use
  Company Number: PHHY2012KR003766

PATIENT
  Sex: Male
  Weight: 78 kg

DRUGS (1)
  1. EXJADE [Suspect]
     Indication: IRON OVERLOAD
     Dosage: 1500 MG/DAY
     Route: 048
     Dates: start: 20100312

REACTIONS (4)
  - SERUM FERRITIN INCREASED [None]
  - DIARRHOEA [None]
  - EPIGASTRIC DISCOMFORT [None]
  - ABDOMINAL PAIN [None]
